FAERS Safety Report 8378447-0 (Version None)
Quarter: 2012Q2

REPORT INFORMATION
  Report Type: 
  Country: None (occurrence: None)
  Receive Date: 20120522
  Receipt Date: 20120326
  Transmission Date: 20120825
  Serious: No
  Sender: FDA-Public Use
  Company Number: US-ASTRAZENECA-2012SE20387

PATIENT
  Sex: Female

DRUGS (3)
  1. ROLAIDS [Concomitant]
  2. PRILOSEC [Suspect]
     Route: 048
  3. NEXIUM [Concomitant]
     Route: 048

REACTIONS (5)
  - DYSPEPSIA [None]
  - GASTROOESOPHAGEAL REFLUX DISEASE [None]
  - DRUG INEFFECTIVE [None]
  - SLEEP DISORDER DUE TO A GENERAL MEDICAL CONDITION [None]
  - COUGH [None]
